FAERS Safety Report 25138232 (Version 1)
Quarter: 2025Q1

REPORT INFORMATION
  Report Type: Spontaneous
  Country: US (occurrence: US)
  Receive Date: 20250330
  Receipt Date: 20250330
  Transmission Date: 20250409
  Serious: Yes (Life-Threatening, Hospitalization, Other)
  Sender: GLENMARK
  Company Number: US-MLMSERVICE-20250312-PI441183-00217-1

PATIENT
  Age: 24 Year
  Sex: Female

DRUGS (1)
  1. METFORMIN HYDROCHLORIDE [Suspect]
     Active Substance: METFORMIN HYDROCHLORIDE
     Indication: Product used for unknown indication
     Route: 048

REACTIONS (6)
  - Electrocardiogram QT prolonged [Unknown]
  - Intentional self-injury [Unknown]
  - Intentional overdose [Unknown]
  - Hypothermia [Unknown]
  - Hypoglycaemia [Recovered/Resolved]
  - Blood lactic acid increased [Unknown]
